FAERS Safety Report 8230841-4 (Version None)
Quarter: 2012Q1

REPORT INFORMATION
  Report Type: 
  Country: None (occurrence: None)
  Receive Date: 20120321
  Receipt Date: 20120309
  Transmission Date: 20120608
  Serious: Yes (Death, Other)
  Sender: FDA-Public Use
  Company Number: JPI-P-013191

PATIENT
  Age: 77 Year
  Sex: Male
  Weight: 85.9566 kg

DRUGS (17)
  1. ZOLPIDEM [Concomitant]
  2. XYREM [Suspect]
     Indication: SOMNOLENCE
     Dosage: 4.5 GM (2.25 GM, 2 IN 1 D), ORAL, 7 GM (3.5 GM, 2 IN 1 D), ORAL, 7.5 GM (3.75 GM, 2 IN 1 D), ORAL, 7
     Route: 048
     Dates: start: 20051208, end: 20060601
  3. XYREM [Suspect]
     Indication: INSOMNIA
     Dosage: 4.5 GM (2.25 GM, 2 IN 1 D), ORAL, 7 GM (3.5 GM, 2 IN 1 D), ORAL, 7.5 GM (3.75 GM, 2 IN 1 D), ORAL, 7
     Route: 048
     Dates: start: 20051208, end: 20060601
  4. XYREM [Suspect]
     Indication: HYPERSOMNIA
     Dosage: 4.5 GM (2.25 GM, 2 IN 1 D), ORAL, 7 GM (3.5 GM, 2 IN 1 D), ORAL, 7.5 GM (3.75 GM, 2 IN 1 D), ORAL, 7
     Route: 048
     Dates: start: 20051208, end: 20060601
  5. XYREM [Suspect]
     Indication: FATIGUE
     Dosage: 4.5 GM (2.25 GM, 2 IN 1 D), ORAL, 7 GM (3.5 GM, 2 IN 1 D), ORAL, 7.5 GM (3.75 GM, 2 IN 1 D), ORAL, 7
     Route: 048
     Dates: start: 20051208, end: 20060601
  6. XYREM [Suspect]
     Indication: SOMNOLENCE
     Dosage: 4.5 GM (2.25 GM, 2 IN 1 D), ORAL, 7 GM (3.5 GM, 2 IN 1 D), ORAL, 7.5 GM (3.75 GM, 2 IN 1 D), ORAL, 7
     Route: 048
     Dates: start: 20081104
  7. XYREM [Suspect]
     Indication: INSOMNIA
     Dosage: 4.5 GM (2.25 GM, 2 IN 1 D), ORAL, 7 GM (3.5 GM, 2 IN 1 D), ORAL, 7.5 GM (3.75 GM, 2 IN 1 D), ORAL, 7
     Route: 048
     Dates: start: 20081104
  8. XYREM [Suspect]
     Indication: HYPERSOMNIA
     Dosage: 4.5 GM (2.25 GM, 2 IN 1 D), ORAL, 7 GM (3.5 GM, 2 IN 1 D), ORAL, 7.5 GM (3.75 GM, 2 IN 1 D), ORAL, 7
     Route: 048
     Dates: start: 20081104
  9. XYREM [Suspect]
     Indication: FATIGUE
     Dosage: 4.5 GM (2.25 GM, 2 IN 1 D), ORAL, 7 GM (3.5 GM, 2 IN 1 D), ORAL, 7.5 GM (3.75 GM, 2 IN 1 D), ORAL, 7
     Route: 048
     Dates: start: 20081104
  10. XYREM [Suspect]
     Indication: SOMNOLENCE
     Dosage: 4.5 GM (2.25 GM, 2 IN 1 D), ORAL, 7 GM (3.5 GM, 2 IN 1 D), ORAL, 7.5 GM (3.75 GM, 2 IN 1 D), ORAL, 7
     Route: 048
     Dates: end: 20101122
  11. XYREM [Suspect]
     Indication: INSOMNIA
     Dosage: 4.5 GM (2.25 GM, 2 IN 1 D), ORAL, 7 GM (3.5 GM, 2 IN 1 D), ORAL, 7.5 GM (3.75 GM, 2 IN 1 D), ORAL, 7
     Route: 048
     Dates: end: 20101122
  12. XYREM [Suspect]
     Indication: HYPERSOMNIA
     Dosage: 4.5 GM (2.25 GM, 2 IN 1 D), ORAL, 7 GM (3.5 GM, 2 IN 1 D), ORAL, 7.5 GM (3.75 GM, 2 IN 1 D), ORAL, 7
     Route: 048
     Dates: end: 20101122
  13. XYREM [Suspect]
     Indication: FATIGUE
     Dosage: 4.5 GM (2.25 GM, 2 IN 1 D), ORAL, 7 GM (3.5 GM, 2 IN 1 D), ORAL, 7.5 GM (3.75 GM, 2 IN 1 D), ORAL, 7
     Route: 048
     Dates: end: 20101122
  14. XYREM [Suspect]
     Indication: SOMNOLENCE
     Dosage: 4.5 GM (2.25 GM, 2 IN 1 D), ORAL, 7 GM (3.5 GM, 2 IN 1 D), ORAL, 7.5 GM (3.75 GM, 2 IN 1 D), ORAL, 7
     Route: 048
     Dates: start: 20060601, end: 20081103
  15. XYREM [Suspect]
     Indication: INSOMNIA
     Dosage: 4.5 GM (2.25 GM, 2 IN 1 D), ORAL, 7 GM (3.5 GM, 2 IN 1 D), ORAL, 7.5 GM (3.75 GM, 2 IN 1 D), ORAL, 7
     Route: 048
     Dates: start: 20060601, end: 20081103
  16. XYREM [Suspect]
     Indication: HYPERSOMNIA
     Dosage: 4.5 GM (2.25 GM, 2 IN 1 D), ORAL, 7 GM (3.5 GM, 2 IN 1 D), ORAL, 7.5 GM (3.75 GM, 2 IN 1 D), ORAL, 7
     Route: 048
     Dates: start: 20060601, end: 20081103
  17. XYREM [Suspect]
     Indication: FATIGUE
     Dosage: 4.5 GM (2.25 GM, 2 IN 1 D), ORAL, 7 GM (3.5 GM, 2 IN 1 D), ORAL, 7.5 GM (3.75 GM, 2 IN 1 D), ORAL, 7
     Route: 048
     Dates: start: 20060601, end: 20081103

REACTIONS (10)
  - MUSCLE SPASMS [None]
  - CONFUSIONAL STATE [None]
  - VOMITING [None]
  - ACUTE CORONARY SYNDROME [None]
  - CARDIO-RESPIRATORY ARREST [None]
  - PAIN IN EXTREMITY [None]
  - FATIGUE [None]
  - DYSPEPSIA [None]
  - NAUSEA [None]
  - FEELING ABNORMAL [None]
